FAERS Safety Report 24529944 (Version 2)
Quarter: 2025Q1

REPORT INFORMATION
  Report Type: Spontaneous
  Country: US (occurrence: US)
  Receive Date: 20241021
  Receipt Date: 20250113
  Transmission Date: 20250409
  Serious: No
  Sender: PFIZER
  Company Number: US-PFIZER INC-202400278590

PATIENT
  Age: 43 Year
  Sex: Male

DRUGS (1)
  1. PROPOFOL [Suspect]
     Active Substance: PROPOFOL
     Indication: Sedation
     Route: 042
     Dates: start: 20240930, end: 20240930

REACTIONS (1)
  - Drug ineffective [Unknown]
